FAERS Safety Report 5483988-X (Version None)
Quarter: 2007Q4

REPORT INFORMATION
  Report Type: 
  Country: None (occurrence: None)
  Receive Date: 20071012
  Receipt Date: 20070928
  Transmission Date: 20080405
  Serious: Yes (Hospitalization)
  Sender: FDA-Public Use
  Company Number: IT-RANBAXY-2007RR-10443

PATIENT

DRUGS (4)
  1. SERTRALINA EG 100MG COMPRESSE REVESTITE CON FILM [Suspect]
  2. SOTALOL HYDROCHLORIDE [Concomitant]
  3. DIGOXIN [Concomitant]
  4. ACENOCUMARINE [Concomitant]

REACTIONS (5)
  - BRADYCARDIA [None]
  - ELECTROCARDIOGRAM QT PROLONGED [None]
  - HYPERGLYCAEMIA [None]
  - TORSADE DE POINTES [None]
  - TRANSAMINASES INCREASED [None]
